FAERS Safety Report 8326460-1 (Version None)
Quarter: 2012Q2

REPORT INFORMATION
  Report Type: 
  Country: None (occurrence: None)
  Receive Date: 20120501
  Receipt Date: 20120420
  Transmission Date: 20120825
  Serious: Yes (Death, Other)
  Sender: FDA-Public Use
  Company Number: KR-FRI-1000030163

PATIENT
  Age: 70 Year
  Sex: Male

DRUGS (4)
  1. ARIPIPRAZOLE [Concomitant]
     Indication: DRUG THERAPY
  2. DOXOFYLLINE [Concomitant]
  3. ROFLUMILAST [Suspect]
     Indication: CHRONIC OBSTRUCTIVE PULMONARY DISEASE
  4. ARIPIPRAZOLE [Concomitant]
     Indication: PSYCHOTIC DISORDER

REACTIONS (2)
  - HEART RATE INCREASED [None]
  - THROMBOCYTOPENIA [None]
